FAERS Safety Report 9257233 (Version 1)
Quarter: 2013Q2

REPORT INFORMATION
  Report Type: Report from Study
  Country: US (occurrence: US)
  Receive Date: 20130426
  Receipt Date: 20130426
  Transmission Date: 20140414
  Serious: Yes (Other)
  Sender: FDA-Public Use
  Company Number: PHEH2013US009141

PATIENT
  Sex: Male

DRUGS (1)
  1. EXJADE [Suspect]
     Indication: THALASSAEMIA
     Dosage: 4 DF DAILY
     Route: 048
     Dates: start: 20100405

REACTIONS (3)
  - Ear infection [Recovering/Resolving]
  - Malaise [Recovering/Resolving]
  - Skin reaction [Recovering/Resolving]
